FAERS Safety Report 8368336-X (Version None)
Quarter: 2012Q2

REPORT INFORMATION
  Report Type: 
  Country: None (occurrence: None)
  Receive Date: 20120517
  Receipt Date: 20120508
  Transmission Date: 20120825
  Serious: Yes (Hospitalization)
  Sender: FDA-Public Use
  Company Number: CO-ELI_LILLY_AND_COMPANY-CO201205003513

PATIENT
  Age: 89 Year
  Sex: Female

DRUGS (5)
  1. FORTEO [Suspect]
     Indication: OSTEOPOROSIS
     Dosage: 20 UG, QD
     Dates: start: 20110701
  2. FUROSEMIDE [Concomitant]
  3. FORTEO [Suspect]
     Dosage: 20 UG, QD
     Dates: start: 20120417
  4. LOSARTAN POTASSIUM [Concomitant]
  5. AMLODIPINE BESYLATE [Concomitant]

REACTIONS (1)
  - CHOLELITHIASIS [None]
